FAERS Safety Report 17848243 (Version 4)
Quarter: 2020Q3

REPORT INFORMATION
  Report Type: Report from Study
  Country: None (occurrence: DE)
  Receive Date: 20200602
  Receipt Date: 20200706
  Transmission Date: 20201103
  Serious: Yes (Hospitalization)
  Sender: FDA-Public Use
  Company Number: DE-ABBVIE-20K-062-3423965-00

PATIENT
  Sex: Male

DRUGS (5)
  1. DUODOPA [Suspect]
     Active Substance: CARBIDOPA\LEVODOPA
     Indication: PARKINSON^S DISEASE
     Dosage: MD 3 ML CRD 1.9 ML/H CRN 1.9 ML/H ED 1.5 ML
     Route: 050
     Dates: start: 20190716, end: 2020
  2. DUODOPA [Suspect]
     Active Substance: CARBIDOPA\LEVODOPA
     Dosage: MD 3.0 ML; CRD 2.4 ML/H; CRN 2.4 ML/H; ED 1 ML
     Route: 050
     Dates: start: 2020, end: 2020
  3. DUODOPA [Suspect]
     Active Substance: CARBIDOPA\LEVODOPA
     Dosage: MD 3 ML CRD 2.6 ML/H CRN 2.4 ML/H ED 1 ML
     Route: 050
     Dates: start: 2020
  4. ESOMEPRAZOL [Concomitant]
     Active Substance: ESOMEPRAZOLE
     Indication: PRODUCT USED FOR UNKNOWN INDICATION
  5. FOLIC ACID. [Concomitant]
     Active Substance: FOLIC ACID
     Indication: PRODUCT USED FOR UNKNOWN INDICATION

REACTIONS (3)
  - Akinesia [Unknown]
  - Tremor [Not Recovered/Not Resolved]
  - Suspected suicide [Not Recovered/Not Resolved]
